FAERS Safety Report 8093321-5 (Version None)
Quarter: 2012Q1

REPORT INFORMATION
  Report Type: 
  Country: None (occurrence: None)
  Receive Date: 20120128
  Receipt Date: 20110901
  Transmission Date: 20120608
  Serious: No
  Sender: FDA-Public Use
  Company Number: US-ABBOTT-11P-163-0851111-00

PATIENT
  Age: 23 Year
  Sex: Female

DRUGS (5)
  1. CELEXA [Concomitant]
     Indication: DEPRESSION
     Route: 048
  2. HUMIRA [Suspect]
     Indication: CROHN'S DISEASE
     Dates: start: 20110831
  3. LIALDA [Concomitant]
     Indication: PRODUCT USED FOR UNKNOWN INDICATION
     Route: 048
  4. PRILOSEC [Concomitant]
     Indication: PRODUCT USED FOR UNKNOWN INDICATION
     Route: 048
  5. CELEXA [Concomitant]
     Indication: ANXIETY

REACTIONS (1)
  - PAIN IN EXTREMITY [None]
